FAERS Safety Report 7373880-8 (Version None)
Quarter: 2011Q1

REPORT INFORMATION
  Report Type: 
  Country: None (occurrence: None)
  Receive Date: 20110325
  Receipt Date: 20110320
  Transmission Date: 20110831
  Serious: No
  Sender: FDA-Public Use
  Company Number: US-PFIZER INC-2011060813

PATIENT
  Sex: Female
  Weight: 135 kg

DRUGS (3)
  1. COUMADIN [Concomitant]
     Indication: COAGULOPATHY
     Dosage: UNK
  2. ZOLOFT [Concomitant]
     Indication: DEPRESSION
     Dosage: UNK
  3. LYRICA [Suspect]
     Indication: FIBROMYALGIA
     Dosage: 75 MG, 1X/DAY
     Route: 048
     Dates: start: 20110307

REACTIONS (4)
  - RASH ERYTHEMATOUS [None]
  - SCRATCH [None]
  - PRURITUS GENERALISED [None]
  - INSOMNIA [None]
